FAERS Safety Report 26084933 (Version 1)
Quarter: 2025Q4

REPORT INFORMATION
  Report Type: Spontaneous
  Country: JP (occurrence: JP)
  Receive Date: 20251125
  Receipt Date: 20251125
  Transmission Date: 20260117
  Serious: Yes (Other)
  Sender: GENMAB
  Company Number: JP-GENMAB-2025-03693

PATIENT
  Age: 67 Year
  Sex: Male

DRUGS (5)
  1. EPKINLY [Suspect]
     Active Substance: EPCORITAMAB-BYSP
     Indication: Diffuse large B-cell lymphoma recurrent
     Dosage: 0.16 MILLIGRAM, SINGLE
     Route: 058
     Dates: start: 202411, end: 202411
  2. EPKINLY [Suspect]
     Active Substance: EPCORITAMAB-BYSP
     Dosage: 0.8 MILLIGRAM, SINGLE
     Route: 058
     Dates: start: 2024, end: 2024
  3. EPKINLY [Suspect]
     Active Substance: EPCORITAMAB-BYSP
     Dosage: 48 MILLIGRAM, UP TO THE SECOND ADMINISTRATION IN CYCLE 2
     Route: 058
     Dates: start: 2024, end: 202501
  4. PREDNISOLONE [Concomitant]
     Active Substance: PREDNISOLONE
     Indication: Premedication
     Dosage: 100 MILLIGRAM, AT FIRST ADMINISTRATION IN CYCLE 1 OF EPKINLY
     Dates: start: 202411, end: 202411
  5. DEXAMETHASONE [Concomitant]
     Active Substance: DEXAMETHASONE
     Indication: Premedication
     Dosage: 15 MILLIGRAM, FROM THE SECOND TO THE FOURTH ADMINISTRATION IN CYCLE 1 OF EPKINLY
     Dates: start: 2024, end: 202412

REACTIONS (3)
  - Herpes zoster disseminated [Unknown]
  - Cytokine release syndrome [Unknown]
  - COVID-19 [Unknown]

NARRATIVE: CASE EVENT DATE: 20240101
